FAERS Safety Report 6975669-8 (Version None)
Quarter: 2010Q3

REPORT INFORMATION
  Report Type: 
  Country: None (occurrence: None)
  Receive Date: 20100910
  Receipt Date: 20090325
  Transmission Date: 20110219
  Serious: No
  Sender: FDA-Public Use
  Company Number: US-WYE-H08713509

PATIENT
  Sex: Male

DRUGS (6)
  1. PRISTIQ [Suspect]
     Indication: DEPRESSION
     Route: 048
     Dates: start: 20090311
  2. REQUIP [Concomitant]
  3. AMBIEN [Concomitant]
  4. OXYCODONE HCL [Concomitant]
  5. ADVAIR DISKUS 100/50 [Concomitant]
  6. PREVACID [Concomitant]

REACTIONS (2)
  - POLLAKIURIA [None]
  - URINARY HESITATION [None]
